FAERS Safety Report 19755094 (Version 1)
Quarter: 2021Q3

REPORT INFORMATION
  Report Type: Spontaneous
  Country: US (occurrence: US)
  Receive Date: 20210824
  Receipt Date: 20210824
  Transmission Date: 20211014
  Serious: Yes (Hospitalization)
  Sender: FDA-Public Use
  Company Number: None

PATIENT
  Age: 18 Year
  Sex: Female
  Weight: 89 kg

DRUGS (8)
  1. ERGOCALCIFEROL. [Concomitant]
     Active Substance: ERGOCALCIFEROL
  2. MOMETASONE [Concomitant]
     Active Substance: MOMETASONE
  3. STELARA [Suspect]
     Active Substance: USTEKINUMAB
  4. PANTOPRAZOLE [Concomitant]
     Active Substance: PANTOPRAZOLE
  5. BETAMETHASONE DIPROPIONATE. [Concomitant]
     Active Substance: BETAMETHASONE DIPROPIONATE
  6. TACROLIMUS. [Concomitant]
     Active Substance: TACROLIMUS
  7. PREDNISONE. [Concomitant]
     Active Substance: PREDNISONE
  8. AZELASTINE. [Concomitant]
     Active Substance: AZELASTINE HYDROCHLORIDE

REACTIONS (3)
  - Crohn^s disease [None]
  - Granuloma [None]
  - Cellulitis [None]
